FAERS Safety Report 13276409 (Version 20)
Quarter: 2022Q3

REPORT INFORMATION
  Report Type: Report from Study
  Country: CA (occurrence: CA)
  Receive Date: 20170228
  Receipt Date: 20220916
  Transmission Date: 20221027
  Serious: Yes (Life-Threatening, Hospitalization, Other)
  Sender: FDA-Public Use
  Company Number: PHHY2015CA076028

PATIENT
  Age: 65 Year
  Sex: Female

DRUGS (55)
  1. XOLAIR [Suspect]
     Active Substance: OMALIZUMAB
     Indication: Asthma
     Dosage: 375 MG, BIW
     Route: 058
     Dates: start: 20090609, end: 20100210
  2. XOLAIR [Suspect]
     Active Substance: OMALIZUMAB
     Dosage: 375 MG, BIW
     Route: 058
  3. XOLAIR [Suspect]
     Active Substance: OMALIZUMAB
     Dosage: UNK
     Route: 058
     Dates: start: 20170224
  4. XOLAIR [Suspect]
     Active Substance: OMALIZUMAB
     Dosage: 375 MG, BIW
     Route: 058
     Dates: start: 20170227
  5. XOLAIR [Suspect]
     Active Substance: OMALIZUMAB
     Dosage: 375 MG, EVERY 4 WEEKS
     Route: 058
     Dates: start: 20170323
  6. XOLAIR [Suspect]
     Active Substance: OMALIZUMAB
     Dosage: UNK
     Route: 058
     Dates: start: 20170424
  7. XOLAIR [Suspect]
     Active Substance: OMALIZUMAB
     Dosage: UNK
     Route: 058
     Dates: start: 20170508
  8. XOLAIR [Suspect]
     Active Substance: OMALIZUMAB
     Dosage: UNK
     Route: 058
     Dates: start: 20170605
  9. XOLAIR [Suspect]
     Active Substance: OMALIZUMAB
     Dosage: UNK
     Route: 058
     Dates: start: 20170605
  10. XOLAIR [Suspect]
     Active Substance: OMALIZUMAB
     Dosage: UNK
     Route: 058
     Dates: start: 20170619
  11. XOLAIR [Suspect]
     Active Substance: OMALIZUMAB
     Dosage: UNK
     Route: 058
     Dates: start: 20170720
  12. XOLAIR [Suspect]
     Active Substance: OMALIZUMAB
     Dosage: UNK
     Route: 058
     Dates: start: 20170816
  13. XOLAIR [Suspect]
     Active Substance: OMALIZUMAB
     Dosage: UNK
     Route: 058
     Dates: start: 20170925
  14. XOLAIR [Suspect]
     Active Substance: OMALIZUMAB
     Dosage: UNK
     Route: 058
     Dates: start: 20171025
  15. XOLAIR [Suspect]
     Active Substance: OMALIZUMAB
     Dosage: UNK
     Route: 058
     Dates: start: 20171205
  16. XOLAIR [Suspect]
     Active Substance: OMALIZUMAB
     Dosage: UNK
     Route: 058
     Dates: start: 20180126
  17. XOLAIR [Suspect]
     Active Substance: OMALIZUMAB
     Dosage: 375 MG, BIW
     Route: 058
     Dates: start: 20180209
  18. XOLAIR [Suspect]
     Active Substance: OMALIZUMAB
     Dosage: 375 MG, BIW
     Route: 058
     Dates: start: 20180427
  19. XOLAIR [Suspect]
     Active Substance: OMALIZUMAB
     Dosage: 375 MG, BIW
     Route: 058
     Dates: start: 20180630
  20. XOLAIR [Suspect]
     Active Substance: OMALIZUMAB
     Dosage: 375 MG, BIW
     Route: 058
     Dates: start: 20180815
  21. XOLAIR [Suspect]
     Active Substance: OMALIZUMAB
     Dosage: 375 MG, BIW
     Route: 058
     Dates: start: 20180914
  22. XOLAIR [Suspect]
     Active Substance: OMALIZUMAB
     Dosage: UNK
     Route: 058
  23. XOLAIR [Suspect]
     Active Substance: OMALIZUMAB
     Dosage: 375 MG, BIW
     Route: 058
     Dates: start: 20181221
  24. XOLAIR [Suspect]
     Active Substance: OMALIZUMAB
     Dosage: 375 MG, BIW
     Route: 058
     Dates: start: 20190510
  25. XOLAIR [Suspect]
     Active Substance: OMALIZUMAB
     Dosage: 375 MG, BIW
     Route: 058
     Dates: start: 20190719
  26. XOLAIR [Suspect]
     Active Substance: OMALIZUMAB
     Dosage: 375 MG, BIW
     Route: 058
     Dates: start: 20190913
  27. XOLAIR [Suspect]
     Active Substance: OMALIZUMAB
     Dosage: 375 MG, BIW
     Route: 058
     Dates: start: 20191025
  28. XOLAIR [Suspect]
     Active Substance: OMALIZUMAB
     Dosage: 375 MG, BIW
     Route: 058
     Dates: start: 20191031
  29. XOLAIR [Suspect]
     Active Substance: OMALIZUMAB
     Dosage: 375 MG, BIW
     Route: 058
     Dates: start: 20191122
  30. XOLAIR [Suspect]
     Active Substance: OMALIZUMAB
     Dosage: UNK
     Route: 058
     Dates: start: 20191211
  31. LEVOFLOXACIN [Suspect]
     Active Substance: LEVOFLOXACIN
     Indication: Productive cough
     Dosage: 750 MG, QD
     Route: 065
  32. LEVOFLOXACIN [Suspect]
     Active Substance: LEVOFLOXACIN
     Dosage: UNK
     Route: 065
     Dates: start: 20170824
  33. VORICONAZOLE [Suspect]
     Active Substance: VORICONAZOLE
     Indication: Bronchopulmonary aspergillosis allergic
     Dosage: FOR 1 MONTH
     Route: 065
  34. PREDNISONE [Suspect]
     Active Substance: PREDNISONE
     Indication: Blood immunoglobulin E increased
     Dosage: 20 MG, QD
     Route: 065
  35. PREDNISONE [Suspect]
     Active Substance: PREDNISONE
     Indication: Asthma
     Dosage: 10 MG, QD
     Route: 065
  36. PREDNISONE [Suspect]
     Active Substance: PREDNISONE
     Indication: Bronchopulmonary aspergillosis allergic
     Dosage: BID
     Route: 065
     Dates: start: 20151026
  37. BIAXIN [Suspect]
     Active Substance: CLARITHROMYCIN
     Indication: Bronchitis
     Dosage: 10 DAY COURSE
     Route: 065
  38. BIAXIN [Suspect]
     Active Substance: CLARITHROMYCIN
     Indication: Productive cough
     Dosage: QD
     Route: 065
  39. BIAXIN [Suspect]
     Active Substance: CLARITHROMYCIN
     Indication: Sputum discoloured
     Dosage: 2 DF, QD
     Route: 065
  40. BIAXIN [Suspect]
     Active Substance: CLARITHROMYCIN
     Indication: Cough
  41. BIAXIN [Suspect]
     Active Substance: CLARITHROMYCIN
     Indication: Pyrexia
  42. ADVAIR HFA [Concomitant]
     Active Substance: FLUTICASONE PROPIONATE\SALMETEROL XINAFOATE
     Indication: Product used for unknown indication
     Route: 065
  43. VALSARTAN [Concomitant]
     Active Substance: VALSARTAN
     Indication: Hypertension
     Dosage: 1 DF, QD
     Route: 048
     Dates: start: 2014
  44. ARTHROTEC [Concomitant]
     Active Substance: DICLOFENAC SODIUM\MISOPROSTOL
     Indication: Product used for unknown indication
     Route: 065
  45. CORTISONE [Concomitant]
     Active Substance: CORTISONE
     Indication: Product used for unknown indication
     Route: 065
  46. SPIRIVA [Concomitant]
     Active Substance: TIOTROPIUM BROMIDE MONOHYDRATE
     Indication: Asthma
     Dosage: 1 DF, QD
     Dates: start: 2007
  47. HYDROCHLOROTHIAZIDE [Concomitant]
     Active Substance: HYDROCHLOROTHIAZIDE
     Indication: Product used for unknown indication
     Route: 065
  48. ZENHALE [Concomitant]
     Active Substance: FORMOTEROL FUMARATE\MOMETASONE FUROATE
     Indication: Asthma
     Dosage: 2 DF, BID
  49. VENTOLIN [Concomitant]
     Active Substance: ALBUTEROL SULFATE
     Indication: Asthma
     Dosage: 2 DF, PRN
     Dates: start: 2007
  50. OMNARIS [Concomitant]
     Active Substance: CICLESONIDE
     Indication: Hypersensitivity
     Dosage: 4 DF, QD
     Dates: start: 2015
  51. CIPRALEX [Concomitant]
     Active Substance: ESCITALOPRAM OXALATE
     Indication: Depression
     Dosage: 1 DF, QD
     Route: 048
     Dates: start: 2014
  52. BILASTINE [Concomitant]
     Active Substance: BILASTINE
     Indication: Product used for unknown indication
     Dosage: 1 DF, BID
     Route: 048
     Dates: start: 201803
  53. SINGULAIR [Concomitant]
     Active Substance: MONTELUKAST SODIUM
     Indication: Product used for unknown indication
     Dosage: 1 DF, QD
     Route: 048
     Dates: start: 201803
  54. ZANTAC [Concomitant]
     Active Substance: RANITIDINE HYDROCHLORIDE
     Indication: Product used for unknown indication
     Dosage: 1 DF, BID
     Route: 048
     Dates: start: 201803
  55. TAPAZOLE [Concomitant]
     Active Substance: METHIMAZOLE
     Indication: Thyroid disorder
     Dosage: 1 DF, BID
     Route: 048
     Dates: start: 201804

REACTIONS (75)
  - Forced expiratory volume decreased [Unknown]
  - Nasopharyngitis [Unknown]
  - Dyspnoea [Unknown]
  - Cholelithiasis [Unknown]
  - Pyrexia [Unknown]
  - Fatigue [Unknown]
  - Bronchopulmonary aspergillosis allergic [Unknown]
  - Malaise [Not Recovered/Not Resolved]
  - Cellulitis [Unknown]
  - Necrosis [Unknown]
  - Wound infection [Unknown]
  - Delirium [Unknown]
  - Forearm fracture [Unknown]
  - Cataract [Unknown]
  - Insomnia [Unknown]
  - Heart rate increased [Unknown]
  - Bronchitis [Recovering/Resolving]
  - Productive cough [Recovering/Resolving]
  - Sputum discoloured [Recovering/Resolving]
  - Wheezing [Unknown]
  - Chest discomfort [Unknown]
  - Functional residual capacity increased [Unknown]
  - Obstructive airways disorder [Unknown]
  - Forced vital capacity decreased [Unknown]
  - Respiratory disorder [Unknown]
  - Anxiety [Unknown]
  - Bronchial secretion retention [Unknown]
  - Sputum increased [Unknown]
  - Allergy to animal [Unknown]
  - Compression fracture [Unknown]
  - Muscle atrophy [Unknown]
  - Back pain [Unknown]
  - Hypertension [Unknown]
  - Nervousness [Unknown]
  - Accident [Unknown]
  - Limb injury [Unknown]
  - Gait disturbance [Unknown]
  - Skin laceration [Unknown]
  - Wound [Unknown]
  - Fall [Unknown]
  - Bone disorder [Unknown]
  - Musculoskeletal discomfort [Unknown]
  - Fibromyalgia [Unknown]
  - Rhinorrhoea [Unknown]
  - Nasal congestion [Unknown]
  - Bone pain [Unknown]
  - Rales [Unknown]
  - Bursitis [Unknown]
  - Decreased appetite [Unknown]
  - Weight decreased [Unknown]
  - Asthenia [Unknown]
  - Disorganised speech [Unknown]
  - Memory impairment [Unknown]
  - Swelling [Unknown]
  - Influenza [Unknown]
  - Animal scratch [Unknown]
  - Arthralgia [Unknown]
  - Fungal infection [Unknown]
  - Oropharyngeal pain [Unknown]
  - Pain [Unknown]
  - Pain in extremity [Not Recovered/Not Resolved]
  - Blood immunoglobulin E increased [Unknown]
  - Oral infection [Unknown]
  - Pharyngitis [Unknown]
  - Pyrexia [Recovered/Resolved]
  - Asthma [Unknown]
  - Cough [Unknown]
  - Weight increased [Unknown]
  - Arthralgia [Not Recovered/Not Resolved]
  - Nausea [Unknown]
  - Diarrhoea [Not Recovered/Not Resolved]
  - Fatigue [Unknown]
  - Eye injury [Unknown]
  - Visual impairment [Unknown]
  - Inappropriate schedule of product administration [Unknown]

NARRATIVE: CASE EVENT DATE: 20150921
